FAERS Safety Report 7557164-0 (Version None)
Quarter: 2011Q2

REPORT INFORMATION
  Report Type: 
  Country: None (occurrence: None)
  Receive Date: 20110620
  Receipt Date: 20110608
  Transmission Date: 20111010
  Serious: Yes (Other)
  Sender: FDA-Public Use
  Company Number: US-ROCHE-749636

PATIENT
  Sex: Male
  Weight: 102.1 kg

DRUGS (4)
  1. ACCUTANE [Suspect]
     Indication: ACNE
     Route: 065
     Dates: start: 19950101, end: 19950801
  2. ACCUTANE [Suspect]
     Route: 065
     Dates: start: 19961001, end: 19970301
  3. SYNTHROID [Concomitant]
     Indication: THYROID DISORDER
  4. INDERIDE-40/25 [Concomitant]

REACTIONS (9)
  - COLITIS ULCERATIVE [None]
  - COLONIC POLYP [None]
  - CROHN'S DISEASE [None]
  - INFLAMMATORY BOWEL DISEASE [None]
  - DEPRESSION [None]
  - EYE HAEMORRHAGE [None]
  - GASTROINTESTINAL INJURY [None]
  - ARTHRITIS [None]
  - IRRITABLE BOWEL SYNDROME [None]
